FAERS Safety Report 5407048-9 (Version None)
Quarter: 2007Q3

REPORT INFORMATION
  Report Type: 
  Country: None (occurrence: None)
  Receive Date: 20070807
  Receipt Date: 20070801
  Transmission Date: 20080115
  Serious: Yes (Death)
  Sender: FDA-Public Use
  Company Number: IN-AVENTIS-200716678GDDC

PATIENT
  Sex: Male
  Weight: 47 kg

DRUGS (4)
  1. LANTUS [Suspect]
     Route: 058
     Dates: start: 20070707, end: 20070713
  2. DRUGS FOR TREATMENT OF TUBERCULOSIS [Concomitant]
     Indication: PULMONARY TUBERCULOSIS
     Route: 048
     Dates: start: 20070707
  3. MOXIFLOXACIN HCL [Concomitant]
     Indication: LUNG CONSOLIDATION
     Route: 048
     Dates: start: 20070707
  4. HUMAN INSULIN [Concomitant]
     Dates: start: 20070714, end: 20070715

REACTIONS (4)
  - DYSPNOEA [None]
  - MYOCARDIAL INFARCTION [None]
  - RESTLESSNESS [None]
  - SENSORY LOSS [None]
